FAERS Safety Report 20655480 (Version 3)
Quarter: 2022Q2

REPORT INFORMATION
  Report Type: Report from Study
  Country: ES (occurrence: None)
  Receive Date: 20220330
  Receipt Date: 20220610
  Transmission Date: 20220720
  Serious: Yes (Death, Hospitalization)
  Sender: FDA-Public Use
  Company Number: ES-ROCHE-2969556

PATIENT
  Age: 67 Year
  Sex: Male
  Weight: 103.5 kg

DRUGS (3)
  1. ATEZOLIZUMAB [Suspect]
     Active Substance: ATEZOLIZUMAB
     Indication: Bladder transitional cell carcinoma stage IV
     Dosage: DATE OF MOST RECENT DOSE OF ATEZOLIZUMAB PRIOR TO ONSET OF AE- 16/NOV/2021?MOST RECENT DOSE OF ATEZO
     Route: 041
     Dates: start: 20210914
  2. GEMCITABINE [Suspect]
     Active Substance: GEMCITABINE
     Indication: Bladder transitional cell carcinoma stage IV
     Dosage: DATE OF MOST RECENT DOSE OF GEMCITABINE PRIOR TO ONSET OF AE- 16/NOV/2021?MOST RECENT DOSE OF GEMCIT
     Route: 042
     Dates: start: 20210914
  3. CISPLATIN [Suspect]
     Active Substance: CISPLATIN
     Indication: Bladder transitional cell carcinoma stage IV
     Dosage: DATE OF MOST RECENT DOSE OF CISPLATIN PRIOR TO ONSET OF AE- 16/NOV/2021?MOST RECENT DOSE OF CISPLATI
     Route: 042
     Dates: start: 20210914

REACTIONS (2)
  - Death [Fatal]
  - COVID-19 [Fatal]

NARRATIVE: CASE EVENT DATE: 20211125
